FAERS Safety Report 5049777-5 (Version None)
Quarter: 2006Q3

REPORT INFORMATION
  Report Type: 
  Country: None (occurrence: None)
  Receive Date: 20060707
  Receipt Date: 20060627
  Transmission Date: 20061208
  Serious: Yes (Death)
  Sender: FDA-Public Use
  Company Number: S06-USA-02479-01

PATIENT
  Age: 55 Year
  Sex: Male

DRUGS (2)
  1. CELEXA [Suspect]
     Indication: DEPRESSION
     Dosage: 20 MG QD PO
     Route: 048
     Dates: start: 20060301, end: 20060501
  2. VALIUM [Concomitant]

REACTIONS (4)
  - COMPLETED SUICIDE [None]
  - ECONOMIC PROBLEM [None]
  - GUN SHOT WOUND [None]
  - TREATMENT NONCOMPLIANCE [None]
